FAERS Safety Report 14007605 (Version 1)
Quarter: 2017Q3

REPORT INFORMATION
  Report Type: Spontaneous
  Country: IT (occurrence: IT)
  Receive Date: 20170925
  Receipt Date: 20170925
  Transmission Date: 20171128
  Serious: Yes (Other)
  Sender: FDA-Public Use
  Company Number: PHHY2017IT139584

PATIENT
  Age: 66 Year
  Sex: Female

DRUGS (2)
  1. VOTRIENT [Suspect]
     Active Substance: PAZOPANIB HYDROCHLORIDE
     Indication: RENAL CANCER
     Dosage: 800 MG, QD
     Route: 048
     Dates: start: 20170405
  2. VOTRIENT [Suspect]
     Active Substance: PAZOPANIB HYDROCHLORIDE
     Dosage: 600 MG, UNK
     Route: 065

REACTIONS (4)
  - Decreased appetite [Recovering/Resolving]
  - Skin toxicity [Recovering/Resolving]
  - Diarrhoea [Recovering/Resolving]
  - Pain in extremity [Recovering/Resolving]

NARRATIVE: CASE EVENT DATE: 20170726
